FAERS Safety Report 8016390-7 (Version None)
Quarter: 2011Q4

REPORT INFORMATION
  Report Type: 
  Country: None (occurrence: None)
  Receive Date: 20111230
  Receipt Date: 20111216
  Transmission Date: 20120403
  Serious: Yes (Death)
  Sender: FDA-Public Use
  Company Number: CN-ASTELLAS-2011US008400

PATIENT
  Age: 64 Year
  Sex: Male
  Weight: 53 kg

DRUGS (3)
  1. GLYCYRRHIZIC ACID, AMMONIUM SALT [Concomitant]
     Indication: PRODUCT USED FOR UNKNOWN INDICATION
     Dosage: 450 MG, UNKNOWN/D
     Route: 065
     Dates: start: 20111101, end: 20111208
  2. ERLOTINIB HYDROCHLORIDE [Suspect]
     Indication: NON-SMALL CELL LUNG CANCER
     Dosage: 1 DF, UID/QD
     Route: 048
     Dates: start: 20111101, end: 20111208
  3. PHOSPHATIDYL CHOLINE [Concomitant]
     Indication: PRODUCT USED FOR UNKNOWN INDICATION
     Dosage: 1368 MG, UNKNOWN/D
     Route: 065
     Dates: start: 20111101, end: 20111208

REACTIONS (2)
  - MALAISE [None]
  - DYSPNOEA [None]
